FAERS Safety Report 11005563 (Version 1)
Quarter: 2015Q2

REPORT INFORMATION
  Report Type: Spontaneous
  Country: US (occurrence: US)
  Receive Date: 20150409
  Receipt Date: 20150409
  Transmission Date: 20150821
  Serious: No
  Sender: FDA-Public Use
  Company Number: US-GLAXOSMITHKLINE-US2015045717

PATIENT
  Sex: Male

DRUGS (1)
  1. ARNUITY ELLIPTA [Suspect]
     Active Substance: FLUTICASONE FUROATE
     Indication: PRODUCT USED FOR UNKNOWN INDICATION
     Route: 055
     Dates: start: 20150402

REACTIONS (5)
  - Aphonia [Unknown]
  - Oropharyngeal pain [Unknown]
  - Prostatic disorder [Unknown]
  - Dysphonia [Unknown]
  - Dry mouth [Unknown]

NARRATIVE: CASE EVENT DATE: 201504
